FAERS Safety Report 8433824-4 (Version None)
Quarter: 2012Q2

REPORT INFORMATION
  Report Type: 
  Country: None (occurrence: None)
  Receive Date: 20120323
  Receipt Date: 20110620
  Transmission Date: 20120825
  Serious: Yes (Hospitalization)
  Sender: FDA-Public Use
  Company Number: 163-21880-11062940

PATIENT
  Age: 71 Year
  Sex: Female

DRUGS (7)
  1. PHOSLO (CALCIUM ACETATE)(UNKNOWN) [Concomitant]
  2. PRILOSEC (OMEPRAZOLE)(UNKNOWN) [Concomitant]
  3. COUMADIN [Concomitant]
  4. DEXAMETHASONE [Concomitant]
  5. REVLIMID [Suspect]
     Indication: MULTIPLE MYELOMA
     Dosage: 10 MG, 1 IN 1 D, PO
     Route: 048
     Dates: start: 20110126
  6. SODIUM PHOSPHATE (SODIUM PHOSPHATE)(UNKNOWN [Concomitant]
  7. NORVASC [Concomitant]

REACTIONS (1)
  - INFECTION [None]
